FAERS Safety Report 23629481 (Version 2)
Quarter: 2024Q1

REPORT INFORMATION
  Report Type: Report from Study
  Country: US (occurrence: US)
  Receive Date: 20240314
  Receipt Date: 20240318
  Transmission Date: 20240409
  Serious: Yes (Other)
  Sender: FDA-Public Use
  Company Number: US-ABBVIE-5676060

PATIENT
  Sex: Male
  Weight: 57 kg

DRUGS (1)
  1. VENCLEXTA [Suspect]
     Active Substance: VENETOCLAX
     Indication: Chronic lymphocytic leukaemia
     Route: 048
     Dates: start: 202301

REACTIONS (6)
  - Basal cell carcinoma [Not Recovered/Not Resolved]
  - Ephelides [Not Recovered/Not Resolved]
  - Breath sounds abnormal [Unknown]
  - Feeling abnormal [Unknown]
  - Hair growth rate abnormal [Not Recovered/Not Resolved]
  - Nail growth abnormal [Not Recovered/Not Resolved]

NARRATIVE: CASE EVENT DATE: 20230101
